FAERS Safety Report 7477748-8 (Version None)
Quarter: 2011Q2

REPORT INFORMATION
  Report Type: 
  Country: None (occurrence: None)
  Receive Date: 20110511
  Receipt Date: 20110511
  Transmission Date: 20111010
  Serious: Yes (Hospitalization)
  Sender: FDA-Public Use
  Company Number: None

PATIENT
  Sex: Male
  Weight: 102.7 kg

DRUGS (2)
  1. TAXOL [Suspect]
     Dosage: 112 MG
  2. CISPLATIN [Suspect]
     Dosage: 56 MG

REACTIONS (5)
  - MALNUTRITION [None]
  - FOOD INTOLERANCE [None]
  - EPISTAXIS [None]
  - DEHYDRATION [None]
  - OESOPHAGEAL CARCINOMA [None]
